FAERS Safety Report 14394535 (Version 1)
Quarter: 2018Q1

REPORT INFORMATION
  Report Type: Spontaneous
  Country: US (occurrence: US)
  Receive Date: 20180116
  Receipt Date: 20180116
  Transmission Date: 20180509
  Serious: No
  Sender: FDA-Public Use
  Company Number: US-IMPAX LABORATORIES, INC-2017-IPXL-02465

PATIENT
  Age: 36 Year
  Sex: Male

DRUGS (4)
  1. BUPROPION XL [Suspect]
     Active Substance: BUPROPION
     Dosage: HALF A TABLET
     Route: 048
     Dates: start: 20170813, end: 2017
  2. BUPROPION XL [Suspect]
     Active Substance: BUPROPION
     Indication: ANXIETY
     Dosage: 150 MG ONE TABLET DAILY
     Route: 048
     Dates: start: 2017, end: 2017
  3. BUPROPION XL [Suspect]
     Active Substance: BUPROPION
     Dosage: 150 MG ONE TABLET DAILY
     Route: 048
     Dates: start: 20170814
  4. GAS-X [Concomitant]
     Active Substance: DIMETHICONE
     Indication: PRODUCT USED FOR UNKNOWN INDICATION
     Dosage: UNK
     Route: 065

REACTIONS (5)
  - Product use in unapproved indication [Unknown]
  - Prescribed underdose [Unknown]
  - Nausea [Recovered/Resolved]
  - Sleep disorder [Recovered/Resolved]
  - Tremor [Recovered/Resolved]

NARRATIVE: CASE EVENT DATE: 20170813
